FAERS Safety Report 4439644-X (Version None)
Quarter: 2004Q3

REPORT INFORMATION
  Report Type: 
  Country: None (occurrence: None)
  Receive Date: 20040830
  Receipt Date: 20040813
  Transmission Date: 20050211
  Serious: Yes (Hospitalization)
  Sender: FDA-Public Use
  Company Number: 04P-163-0270539-00

PATIENT
  Age: 76 Year
  Sex: Female

DRUGS (7)
  1. HUMIRA [Suspect]
     Indication: RHEUMATOID ARTHRITIS
     Dosage: 40 MG, 1 IN 2 WK, SUBCUTANEOUS
     Route: 058
     Dates: start: 20030601, end: 20031001
  2. METHOTREXATE [Concomitant]
  3. PREDNISONE [Concomitant]
  4. SULFASALAZINE [Concomitant]
  5. RITONAVIR [Concomitant]
  6. LEVOTHYROXINE SODIUM [Concomitant]
  7. DARVOCET [Concomitant]

REACTIONS (1)
  - PHARYNGOLARYNGEAL ABSCESS [None]
